FAERS Safety Report 9310670 (Version 7)
Quarter: 2014Q2

REPORT INFORMATION
  Report Type: Spontaneous
  Country: US (occurrence: US)
  Receive Date: 20130527
  Receipt Date: 20140622
  Transmission Date: 20141212
  Serious: No
  Sender: FDA-Public Use
  Company Number: US-009507513-1305USA013684

PATIENT
  Age: 32 Year
  Sex: Female
  Weight: 81.63 kg

DRUGS (2)
  1. IMPLANON [Suspect]
     Indication: CONTRACEPTION
     Dosage: 68 MG, 1 DF
     Route: 059
     Dates: start: 2010
  2. VALACYCLOVIR HYDROCHLORIDE [Concomitant]
     Dosage: UNK, PRN

REACTIONS (7)
  - Pain [Not Recovered/Not Resolved]
  - Peripheral swelling [Not Recovered/Not Resolved]
  - Medical device complication [Not Recovered/Not Resolved]
  - Medical device complication [Not Recovered/Not Resolved]
  - Device difficult to use [Not Recovered/Not Resolved]
  - Complication of device removal [Not Recovered/Not Resolved]
  - Device dislocation [Unknown]
